FAERS Safety Report 8312200 (Version 5)
Quarter: 2012Q4

REPORT INFORMATION
  Report Type: Report from Study
  Country: JP (occurrence: JP)
  Receive Date: 20111227
  Receipt Date: 20120907
  Transmission Date: 20130627
  Serious: Yes (Hospitalization, Other)
  Sender: FDA-Public Use
  Company Number: JP-ROCHE-1023781

PATIENT
  Age: 80 Year
  Sex: Female
  Weight: 55 kg

DRUGS (20)
  1. OMALIZUMAB [Suspect]
     Indication: ASTHMA
     Route: 058
     Dates: start: 20101119
  2. OMALIZUMAB [Suspect]
     Route: 065
     Dates: start: 20110114
  3. OMALIZUMAB [Suspect]
     Route: 065
     Dates: start: 20110204
  4. OMALIZUMAB [Suspect]
     Route: 065
     Dates: start: 20110311
  5. OMALIZUMAB [Suspect]
     Route: 065
     Dates: start: 20110617, end: 20110618
  6. SYMBICORT [Concomitant]
     Route: 065
     Dates: start: 20110121
  7. PULMICORT [Concomitant]
     Route: 065
     Dates: start: 20070723, end: 20110120
  8. ALVESCO [Concomitant]
     Route: 065
     Dates: start: 20080711, end: 20110120
  9. SEREVENT [Concomitant]
     Route: 065
     Dates: start: 20070723, end: 20110120
  10. HOKUNALIN [Concomitant]
     Route: 065
     Dates: start: 20070723, end: 20110217
  11. KIPRES [Concomitant]
     Route: 065
     Dates: start: 20070723
  12. THEOPHYLLINE [Concomitant]
     Route: 065
     Dates: start: 20070723
  13. THEOPHYLLINE [Concomitant]
  14. SULTANOL [Concomitant]
     Route: 065
     Dates: start: 20070723
  15. AMARYL [Concomitant]
     Route: 065
     Dates: start: 20101119
  16. NORVASC [Concomitant]
     Route: 065
     Dates: start: 20101019
  17. CRESTOR [Concomitant]
     Route: 065
     Dates: start: 20101019
  18. URSO [Concomitant]
     Route: 065
     Dates: start: 20101119
  19. GASTER [Concomitant]
     Route: 065
     Dates: start: 20101119
  20. ITRIZOLE [Concomitant]
     Route: 065
     Dates: start: 20101119, end: 20101217

REACTIONS (2)
  - Asthma [Recovered/Resolved]
  - Liver disorder [Recovered/Resolved]
